FAERS Safety Report 7716267-8 (Version None)
Quarter: 2011Q3

REPORT INFORMATION
  Report Type: 
  Country: None (occurrence: None)
  Receive Date: 20110829
  Receipt Date: 20110825
  Transmission Date: 20111222
  Serious: Yes (Other)
  Sender: FDA-Public Use
  Company Number: JP-PFIZER INC-2011197814

PATIENT
  Age: 17 Year
  Sex: Male

DRUGS (2)
  1. METHYLPREDNISOLONE [Suspect]
  2. HYDROCORTISONE SODIUM SUCCINATE [Suspect]
     Route: 042

REACTIONS (2)
  - ANAPHYLACTIC REACTION [None]
  - ASTHMA [None]
